FAERS Safety Report 15248784 (Version 1)
Quarter: 2018Q3

REPORT INFORMATION
  Report Type: Spontaneous
  Country: US (occurrence: US)
  Receive Date: 20180715
  Receipt Date: 20180715
  Transmission Date: 20181010
  Serious: Yes (Life-Threatening, Hospitalization, Disabling, Other)
  Sender: FDA-Public Use
  Company Number: None

PATIENT

DRUGS (13)
  1. PLAVIX [Concomitant]
     Active Substance: CLOPIDOGREL BISULFATE
  2. RAPAELO (SILODOSIN) [Concomitant]
  3. CYANOCOBALAMIN. [Concomitant]
     Active Substance: CYANOCOBALAMIN
  4. INSULIN DEMITIR (LEVEMIR) [Concomitant]
  5. ARISTADA [Suspect]
     Active Substance: ARIPIPRAZOLE LAUROXIL
     Indication: SCHIZOPHRENIA
     Dosage: ?          QUANTITY:1 DF DOSAGE FORM;OTHER ROUTE:INJECTION?
  6. LIPITOR [Concomitant]
     Active Substance: ATORVASTATIN CALCIUM
  7. ULTRAM [Concomitant]
     Active Substance: TRAMADOL HYDROCHLORIDE
  8. CARVEDILOL. [Concomitant]
     Active Substance: CARVEDILOL
  9. POTASSIUM CHLORIDE. [Concomitant]
     Active Substance: POTASSIUM CHLORIDE
  10. SYNTHROID [Concomitant]
     Active Substance: LEVOTHYROXINE SODIUM
  11. CYCLOBENZAPRINE (FLEXERIL) [Concomitant]
  12. NEURONTIN [Concomitant]
     Active Substance: GABAPENTIN
  13. VITAMIN B12 [Concomitant]
     Active Substance: CYANOCOBALAMIN

REACTIONS (9)
  - Hypotension [None]
  - Blood count abnormal [None]
  - Sleep apnoea syndrome [None]
  - Bladder dysfunction [None]
  - Urinary tract infection [None]
  - Erectile dysfunction [None]
  - Coronary artery disease [None]
  - Dyspnoea [None]
  - Myocardial infarction [None]
